FAERS Safety Report 16418710 (Version 3)
Quarter: 2019Q3

REPORT INFORMATION
  Report Type: Report from Study
  Country: JP (occurrence: JP)
  Receive Date: 20190612
  Receipt Date: 20190930
  Transmission Date: 20191004
  Serious: Yes (Hospitalization, Other)
  Sender: FDA-Public Use
  Company Number: JP-CLINIGEN GROUP PLC/ CLINIGEN HEALTHCARE LTD-JP-CLGN-19-00077

PATIENT
  Age: 11 Year
  Sex: Male
  Weight: 36.8 kg

DRUGS (109)
  1. ADRIACIN [Suspect]
     Active Substance: DOXORUBICIN HYDROCHLORIDE
     Indication: EWING-LIKE SARCOMA
     Route: 041
     Dates: start: 20190111, end: 20190112
  2. ONCOVIN [Suspect]
     Active Substance: VINCRISTINE SULFATE
     Indication: EWING-LIKE SARCOMA
     Route: 040
     Dates: start: 20190111, end: 20190111
  3. IFOMIDE [Suspect]
     Active Substance: IFOSFAMIDE
     Indication: EWING-LIKE SARCOMA
     Route: 041
     Dates: start: 20190125, end: 20190129
  4. LACTEC [Concomitant]
     Active Substance: CALCIUM CHLORIDE ANHYDROUS\POTASSIUM CHLORIDE\SODIUM CHLORIDE\SODIUM LACTATE
     Route: 041
     Dates: start: 20190111, end: 20190112
  5. SODIUM PICOSULFATE HYDRATE [Concomitant]
     Active Substance: SODIUM PICOSULFATE
     Route: 048
     Dates: start: 20190215, end: 20190315
  6. FLUCONAZOLE. [Concomitant]
     Active Substance: FLUCONAZOLE
     Indication: INFECTION PROPHYLAXIS
     Route: 048
     Dates: start: 20190111, end: 20190208
  7. MAGMITT [Concomitant]
     Active Substance: MAGNESIUM OXIDE
     Route: 048
     Dates: start: 20190131, end: 20190204
  8. MAGMITT [Concomitant]
     Active Substance: MAGNESIUM OXIDE
     Route: 048
     Dates: start: 20190307, end: 20190315
  9. UROMITEXAN [Concomitant]
     Active Substance: MESNA
     Indication: PROPHYLAXIS
     Route: 041
     Dates: start: 20190111, end: 20190111
  10. UROMITEXAN [Concomitant]
     Active Substance: MESNA
     Route: 041
     Dates: start: 20190314, end: 20190318
  11. KN NO.1 [Concomitant]
     Route: 041
     Dates: start: 20190124, end: 20190130
  12. KN NO.1 [Concomitant]
     Route: 041
     Dates: start: 20190313, end: 20190319
  13. HEPARIN SODIUM. [Concomitant]
     Active Substance: HEPARIN SODIUM
     Route: 041
     Dates: start: 20190215, end: 20190216
  14. SEISHOKU [Concomitant]
     Active Substance: SODIUM CHLORIDE
     Route: 041
     Dates: start: 20190111, end: 20190111
  15. SEISHOKU [Concomitant]
     Active Substance: SODIUM CHLORIDE
     Route: 041
     Dates: start: 20190125, end: 20190129
  16. LASIX [Concomitant]
     Active Substance: FUROSEMIDE
     Indication: PRODUCT USED FOR UNKNOWN INDICATION
     Route: 040
     Dates: start: 20190216, end: 20190216
  17. NERIPROCT OINTMENT [Concomitant]
     Indication: PRODUCT USED FOR UNKNOWN INDICATION
     Route: 061
     Dates: start: 20190223, end: 20190315
  18. SAVENE [Suspect]
     Active Substance: DEXRAZOXANE
     Indication: CHEMOTHERAPY CARDIOTOXICITY ATTENUATION
     Route: 041
     Dates: start: 20190111, end: 20190112
  19. FLUCONAZOLE. [Concomitant]
     Active Substance: FLUCONAZOLE
     Route: 048
     Dates: start: 20190215, end: 20190315
  20. OLOPATADINE HYDROCHLORIDE OD [Concomitant]
     Route: 048
     Dates: start: 20190217, end: 20190217
  21. LYRICA [Concomitant]
     Active Substance: PREGABALIN
     Route: 048
     Dates: start: 20190219, end: 20190315
  22. MAGMITT [Concomitant]
     Active Substance: MAGNESIUM OXIDE
     Route: 048
     Dates: start: 20190130, end: 20190130
  23. MAGMITT [Concomitant]
     Active Substance: MAGNESIUM OXIDE
     Route: 048
     Dates: start: 20190206, end: 20190208
  24. MAGMITT [Concomitant]
     Active Substance: MAGNESIUM OXIDE
     Route: 048
     Dates: start: 20190306, end: 20190306
  25. CARVEDILOL. [Concomitant]
     Active Substance: CARVEDILOL
     Route: 048
     Dates: start: 20190215, end: 20190315
  26. DECADRON [Concomitant]
     Active Substance: DEXAMETHASONE
     Route: 048
     Dates: start: 20190126, end: 20190126
  27. EMEND [Concomitant]
     Active Substance: APREPITANT
     Route: 048
     Dates: start: 20190315, end: 20190315
  28. EMEND [Concomitant]
     Active Substance: APREPITANT
     Route: 048
     Dates: start: 20190111, end: 20190111
  29. UROMITEXAN [Concomitant]
     Active Substance: MESNA
     Route: 041
     Dates: start: 20190111, end: 20190111
  30. UROMITEXAN [Concomitant]
     Active Substance: MESNA
     Route: 041
     Dates: start: 20190125, end: 20190129
  31. GRANISETRON [Concomitant]
     Active Substance: GRANISETRON
     Indication: PROPHYLAXIS OF NAUSEA AND VOMITING
     Route: 040
     Dates: start: 20190111, end: 20190112
  32. GRANISETRON [Concomitant]
     Active Substance: GRANISETRON
     Route: 040
     Dates: start: 20190215, end: 20190216
  33. KN NO.1 [Concomitant]
     Indication: URINARY TRACT DISORDER PROPHYLAXIS
     Route: 041
     Dates: start: 20190111, end: 20190112
  34. G-LASTA [Concomitant]
     Active Substance: PEGFILGRASTIM
     Indication: COLONY STIMULATING FACTOR THERAPY
     Route: 058
     Dates: start: 20190113, end: 20190113
  35. SEISHOKU [Concomitant]
     Active Substance: SODIUM CHLORIDE
     Route: 041
     Dates: start: 20190111, end: 20190112
  36. SEISHOKU [Concomitant]
     Active Substance: SODIUM CHLORIDE
     Route: 040
     Dates: start: 20190314, end: 20190318
  37. DISTILLED WATER [Concomitant]
     Route: 041
     Dates: start: 20190215, end: 20190216
  38. MEROPENEM. [Concomitant]
     Active Substance: MEROPENEM
     Indication: PRODUCT USED FOR UNKNOWN INDICATION
     Route: 041
     Dates: start: 20190223, end: 20190311
  39. ENDOXAN [Suspect]
     Active Substance: CYCLOPHOSPHAMIDE
     Route: 041
     Dates: start: 20190215, end: 20190215
  40. ONCOVIN [Suspect]
     Active Substance: VINCRISTINE SULFATE
     Route: 040
     Dates: start: 20190215, end: 20190215
  41. LACTEC [Concomitant]
     Active Substance: CALCIUM CHLORIDE ANHYDROUS\POTASSIUM CHLORIDE\SODIUM CHLORIDE\SODIUM LACTATE
     Indication: MEDICATION DILUTION
     Route: 041
     Dates: start: 20190215, end: 20190216
  42. OLOPATADINE HYDROCHLORIDE OD [Concomitant]
     Indication: RHINITIS ALLERGIC
     Route: 048
     Dates: start: 20190111, end: 20190208
  43. OLOPATADINE HYDROCHLORIDE OD [Concomitant]
     Route: 048
     Dates: start: 20190215, end: 20190216
  44. LYRICA [Concomitant]
     Active Substance: PREGABALIN
     Route: 048
     Dates: start: 20190218, end: 20190218
  45. MAGMITT [Concomitant]
     Active Substance: MAGNESIUM OXIDE
     Indication: PRODUCT USED FOR UNKNOWN INDICATION
     Route: 048
     Dates: start: 20190111, end: 20190117
  46. MAGMITT [Concomitant]
     Active Substance: MAGNESIUM OXIDE
     Route: 048
     Dates: start: 20190118, end: 20190118
  47. DECADRON [Concomitant]
     Active Substance: DEXAMETHASONE
     Indication: PROPHYLAXIS OF NAUSEA AND VOMITING
     Route: 048
     Dates: start: 20190111, end: 20190111
  48. DECADRON [Concomitant]
     Active Substance: DEXAMETHASONE
     Route: 048
     Dates: start: 20190112, end: 20190113
  49. DECADRON [Concomitant]
     Active Substance: DEXAMETHASONE
     Route: 048
     Dates: start: 20190314, end: 20190314
  50. EMEND [Concomitant]
     Active Substance: APREPITANT
     Route: 048
     Dates: start: 20190127, end: 20190128
  51. EMEND [Concomitant]
     Active Substance: APREPITANT
     Route: 048
     Dates: start: 20190314, end: 20190314
  52. UROMITEXAN [Concomitant]
     Active Substance: MESNA
     Route: 041
     Dates: start: 20190215, end: 20190215
  53. GRANISETRON [Concomitant]
     Active Substance: GRANISETRON
     Route: 040
     Dates: start: 20190125, end: 20190129
  54. G-LASTA [Concomitant]
     Active Substance: PEGFILGRASTIM
     Route: 058
     Dates: start: 20190319, end: 20190319
  55. SEISHOKU [Concomitant]
     Active Substance: SODIUM CHLORIDE
     Indication: MEDICATION DILUTION
     Route: 041
     Dates: start: 20190111, end: 20190111
  56. SEISHOKU [Concomitant]
     Active Substance: SODIUM CHLORIDE
     Route: 040
     Dates: start: 20190111, end: 20190112
  57. SEISHOKU [Concomitant]
     Active Substance: SODIUM CHLORIDE
     Route: 041
     Dates: start: 20190222, end: 20190223
  58. SAVENE [Suspect]
     Active Substance: DEXRAZOXANE
     Route: 041
     Dates: start: 20190215, end: 20190216
  59. DAIPHEN [Concomitant]
     Active Substance: SULFAMETHOXAZOLE\TRIMETHOPRIM
     Indication: INFECTION PROPHYLAXIS
     Route: 048
     Dates: start: 20190111, end: 20190208
  60. LYRICA [Concomitant]
     Active Substance: PREGABALIN
     Route: 048
     Dates: start: 20190215, end: 20190216
  61. CARVEDILOL. [Concomitant]
     Active Substance: CARVEDILOL
     Indication: PRODUCT USED FOR UNKNOWN INDICATION
     Route: 048
     Dates: start: 20190111, end: 20190208
  62. DECADRON [Concomitant]
     Active Substance: DEXAMETHASONE
     Route: 048
     Dates: start: 20190315, end: 20190315
  63. EMEND [Concomitant]
     Active Substance: APREPITANT
     Indication: PROPHYLAXIS OF NAUSEA AND VOMITING
     Route: 048
     Dates: start: 20190112, end: 20190113
  64. HEPARIN SODIUM. [Concomitant]
     Active Substance: HEPARIN SODIUM
     Indication: URINARY TRACT DISORDER PROPHYLAXIS
     Route: 041
     Dates: start: 20190111, end: 20190112
  65. SEISHOKU [Concomitant]
     Active Substance: SODIUM CHLORIDE
     Route: 041
     Dates: start: 20190215, end: 20190216
  66. SEISHOKU [Concomitant]
     Active Substance: SODIUM CHLORIDE
     Route: 041
     Dates: start: 20190222, end: 20190222
  67. SEISHOKU [Concomitant]
     Active Substance: SODIUM CHLORIDE
     Route: 041
     Dates: start: 20190314, end: 20190318
  68. DISTILLED WATER [Concomitant]
     Indication: MEDICATION DILUTION
     Route: 041
     Dates: start: 20190111, end: 20190112
  69. ADRIACIN [Suspect]
     Active Substance: DOXORUBICIN HYDROCHLORIDE
     Route: 041
     Dates: start: 20190215, end: 20190216
  70. IFOMIDE [Suspect]
     Active Substance: IFOSFAMIDE
     Route: 041
     Dates: start: 20190314, end: 20190318
  71. OLOPATADINE HYDROCHLORIDE OD [Concomitant]
     Route: 048
     Dates: start: 20190219, end: 20190315
  72. MAGMITT [Concomitant]
     Active Substance: MAGNESIUM OXIDE
     Route: 048
     Dates: start: 20190205, end: 20190205
  73. MAGMITT [Concomitant]
     Active Substance: MAGNESIUM OXIDE
     Route: 048
     Dates: start: 20190219, end: 20190305
  74. HEPARIN SODIUM. [Concomitant]
     Active Substance: HEPARIN SODIUM
     Route: 041
     Dates: start: 20190313, end: 20190319
  75. SEISHOKU [Concomitant]
     Active Substance: SODIUM CHLORIDE
     Route: 041
     Dates: start: 20190125, end: 20190129
  76. SEISHOKU [Concomitant]
     Active Substance: SODIUM CHLORIDE
     Route: 040
     Dates: start: 20190125, end: 20190129
  77. ENDOXAN [Suspect]
     Active Substance: CYCLOPHOSPHAMIDE
     Indication: EWING-LIKE SARCOMA
     Route: 041
     Dates: start: 20190111, end: 20190111
  78. DAIPHEN [Concomitant]
     Active Substance: SULFAMETHOXAZOLE\TRIMETHOPRIM
     Route: 048
     Dates: start: 20190215, end: 20190315
  79. OLOPATADINE HYDROCHLORIDE OD [Concomitant]
     Route: 048
     Dates: start: 20190218, end: 20190218
  80. LYRICA [Concomitant]
     Active Substance: PREGABALIN
     Indication: PRODUCT USED FOR UNKNOWN INDICATION
     Route: 048
     Dates: start: 20190111, end: 20190208
  81. DECADRON [Concomitant]
     Active Substance: DEXAMETHASONE
     Route: 048
     Dates: start: 20190215, end: 20190215
  82. UROMITEXAN [Concomitant]
     Active Substance: MESNA
     Route: 041
     Dates: start: 20190125, end: 20190129
  83. UROMITEXAN [Concomitant]
     Active Substance: MESNA
     Route: 041
     Dates: start: 20190314, end: 20190318
  84. SEISHOKU [Concomitant]
     Active Substance: SODIUM CHLORIDE
     Route: 040
     Dates: start: 20190215, end: 20190215
  85. SEISHOKU [Concomitant]
     Active Substance: SODIUM CHLORIDE
     Route: 041
     Dates: start: 20190215, end: 20190215
  86. SEISHOKU [Concomitant]
     Active Substance: SODIUM CHLORIDE
     Route: 041
     Dates: start: 20190314, end: 20190318
  87. SEISHOKU [Concomitant]
     Active Substance: SODIUM CHLORIDE
     Route: 041
     Dates: start: 20190314, end: 20190318
  88. MAGMITT [Concomitant]
     Active Substance: MAGNESIUM OXIDE
     Route: 048
     Dates: start: 20190119, end: 20190129
  89. MAGMITT [Concomitant]
     Active Substance: MAGNESIUM OXIDE
     Route: 048
     Dates: start: 20190215, end: 20190216
  90. MAGMITT [Concomitant]
     Active Substance: MAGNESIUM OXIDE
     Route: 048
     Dates: start: 20190217, end: 20190217
  91. DECADRON [Concomitant]
     Active Substance: DEXAMETHASONE
     Route: 048
     Dates: start: 20190127, end: 20190128
  92. DECADRON [Concomitant]
     Active Substance: DEXAMETHASONE
     Route: 048
     Dates: start: 20190216, end: 20190217
  93. EMEND [Concomitant]
     Active Substance: APREPITANT
     Route: 048
     Dates: start: 20190215, end: 20190215
  94. EMEND [Concomitant]
     Active Substance: APREPITANT
     Route: 048
     Dates: start: 20190216, end: 20190217
  95. GRANISETRON [Concomitant]
     Active Substance: GRANISETRON
     Route: 040
     Dates: start: 20190314, end: 20190318
  96. G-LASTA [Concomitant]
     Active Substance: PEGFILGRASTIM
     Route: 058
     Dates: start: 20190217, end: 20190217
  97. SEISHOKU [Concomitant]
     Active Substance: SODIUM CHLORIDE
     Route: 040
     Dates: start: 20190118, end: 20190123
  98. SEISHOKU [Concomitant]
     Active Substance: SODIUM CHLORIDE
     Route: 041
     Dates: start: 20190111, end: 20190111
  99. SEISHOKU [Concomitant]
     Active Substance: SODIUM CHLORIDE
     Route: 041
     Dates: start: 20190215, end: 20190215
  100. SEISHOKU [Concomitant]
     Active Substance: SODIUM CHLORIDE
     Route: 041
     Dates: start: 20190215, end: 20190216
  101. ETOPOSIDE. [Suspect]
     Active Substance: ETOPOSIDE
     Indication: EWING-LIKE SARCOMA
     Route: 041
     Dates: start: 20190125, end: 20190129
  102. ETOPOSIDE. [Suspect]
     Active Substance: ETOPOSIDE
     Route: 041
     Dates: start: 20190314, end: 20190318
  103. SODIUM PICOSULFATE HYDRATE [Concomitant]
     Active Substance: SODIUM PICOSULFATE
     Indication: CONSTIPATION
     Route: 048
     Dates: start: 20190111, end: 20190208
  104. MAGMITT [Concomitant]
     Active Substance: MAGNESIUM OXIDE
     Route: 048
     Dates: start: 20190218, end: 20190218
  105. EMEND [Concomitant]
     Active Substance: APREPITANT
     Indication: PROPHYLAXIS OF NAUSEA AND VOMITING
     Route: 048
     Dates: start: 20190126, end: 20190126
  106. UROMITEXAN [Concomitant]
     Active Substance: MESNA
     Route: 041
     Dates: start: 20190215, end: 20190215
  107. KN NO.1 [Concomitant]
     Route: 041
     Dates: start: 20190215, end: 20190216
  108. HEPARIN SODIUM. [Concomitant]
     Active Substance: HEPARIN SODIUM
     Route: 041
     Dates: start: 20190124, end: 20190130
  109. SEISHOKU [Concomitant]
     Active Substance: SODIUM CHLORIDE
     Route: 041
     Dates: start: 20190125, end: 20190129

REACTIONS (3)
  - Off label use [Unknown]
  - Bone marrow failure [Recovering/Resolving]
  - Febrile neutropenia [Recovering/Resolving]

NARRATIVE: CASE EVENT DATE: 20190118
